FAERS Safety Report 24731739 (Version 3)
Quarter: 2024Q4

REPORT INFORMATION
  Report Type: Report from Study
  Country: US (occurrence: US)
  Receive Date: 20241213
  Receipt Date: 20241218
  Transmission Date: 20250114
  Serious: Yes (Other)
  Sender: UCB
  Company Number: US-UCBSA-2024064665

PATIENT
  Age: 23 Year
  Sex: Female
  Weight: 61.8 kg

DRUGS (2)
  1. FINTEPLA [Suspect]
     Active Substance: FENFLURAMINE
     Indication: Severe myoclonic epilepsy of infancy
     Dosage: 26.4 MILLIGRAM PER DAY
     Dates: start: 202011
  2. FINTEPLA [Suspect]
     Active Substance: FENFLURAMINE
     Dosage: 6 MILLILITER, 2X/DAY (BID)

REACTIONS (2)
  - Pulmonary valve incompetence [Unknown]
  - Mitral valve thickening [Unknown]

NARRATIVE: CASE EVENT DATE: 20241125
